FAERS Safety Report 6401599-6 (Version None)
Quarter: 2009Q4

REPORT INFORMATION
  Report Type: 
  Country: None (occurrence: None)
  Receive Date: 20091009
  Receipt Date: 20090924
  Transmission Date: 20100525
  Serious: Yes (Hospitalization, Other)
  Sender: FDA-Public Use
  Company Number: 2009002931

PATIENT
  Age: 73 Year
  Sex: Male

DRUGS (7)
  1. ERLOTINIB HYDROCHLORIDE [Suspect]
     Indication: NON-SMALL CELL LUNG CANCER
     Dosage: (150 MG, QD), ORAL
     Route: 048
     Dates: start: 20090720
  2. UNKNOWN [Suspect]
     Indication: NON-SMALL CELL LUNG CANCER
     Dosage: (1764 MG, 1 IN 3 M), INTRAVENOUS
     Route: 042
  3. LANSOPRAZOLE [Concomitant]
  4. PARACETAMOL (PARACETAMOL) [Concomitant]
  5. BIMATOPROST [Concomitant]
  6. SALBUTAMOL (SALBUTAMOL) [Concomitant]
  7. ORAMORPH SR [Concomitant]

REACTIONS (7)
  - ASTHENIA [None]
  - CONFUSIONAL STATE [None]
  - DECREASED APPETITE [None]
  - DEHYDRATION [None]
  - DIARRHOEA [None]
  - FATIGUE [None]
  - HYPERCALCAEMIA [None]
